FAERS Safety Report 25064265 (Version 1)
Quarter: 2025Q1

REPORT INFORMATION
  Report Type: Spontaneous
  Country: MX (occurrence: MX)
  Receive Date: 20250311
  Receipt Date: 20250311
  Transmission Date: 20250409
  Serious: Yes (Other)
  Sender: MERCK SHARP & DOHME LLC
  Company Number: MX-009507513-2260630

PATIENT
  Age: 61 Year
  Sex: Female

DRUGS (4)
  1. KEYTRUDA [Suspect]
     Active Substance: PEMBROLIZUMAB
     Indication: Endometrial cancer recurrent
     Dates: start: 20240125, end: 20240615
  2. KEYTRUDA [Suspect]
     Active Substance: PEMBROLIZUMAB
     Indication: Endometrial cancer recurrent
     Dates: start: 20240716, end: 20250214
  3. CARBOPLATIN [Suspect]
     Active Substance: CARBOPLATIN
     Indication: Endometrial cancer recurrent
     Dates: start: 20240125, end: 20240615
  4. PACLITAXEL [Suspect]
     Active Substance: PACLITAXEL
     Indication: Endometrial cancer recurrent
     Dates: start: 20240125, end: 20240615

REACTIONS (8)
  - Neutropenia [Recovered/Resolved]
  - Neuropathy peripheral [Recovered/Resolved]
  - Neutropenia [Recovered/Resolved]
  - Anaemia [Recovered/Resolved]
  - Diarrhoea [Recovered/Resolved]
  - Neuropathy peripheral [Recovered/Resolved]
  - Diarrhoea [Recovered/Resolved]
  - Product use in unapproved indication [Unknown]

NARRATIVE: CASE EVENT DATE: 20240101
